FAERS Safety Report 14019124 (Version 6)
Quarter: 2018Q3

REPORT INFORMATION
  Report Type: Spontaneous
  Country: US (occurrence: US)
  Receive Date: 20170928
  Receipt Date: 20180911
  Transmission Date: 20181010
  Serious: Yes (Other)
  Sender: FDA-Public Use
  Company Number: US-BAYER-2017-178550

PATIENT
  Age: 25 Year
  Sex: Male

DRUGS (4)
  1. KOGENATE FS [Suspect]
     Active Substance: ANTIHEMOPHILIC FACTOR, HUMAN RECOMBINANT
     Indication: FACTOR VIII DEFICIENCY
     Dosage: 2552 IU, TIW AND Q24HRS PRN BLEEDS
     Route: 042
     Dates: start: 20170111
  2. KOGENATE FS [Suspect]
     Active Substance: ANTIHEMOPHILIC FACTOR, HUMAN RECOMBINANT
     Indication: FACTOR VIII DEFICIENCY
     Dosage: 2252 IU, THREE TIMES A WEEK AND PRN
     Route: 042
     Dates: start: 20180319
  3. KOGENATE FS [Suspect]
     Active Substance: ANTIHEMOPHILIC FACTOR, HUMAN RECOMBINANT
     Indication: FACTOR VIII DEFICIENCY
     Dosage: 2856 IU, TIW AND Q24HRS PRN BLEEDS
     Route: 042
     Dates: start: 20170117
  4. KOGENATE FS [Suspect]
     Active Substance: ANTIHEMOPHILIC FACTOR, HUMAN RECOMBINANT
     Indication: FACTOR VIII DEFICIENCY
     Dosage: 2856 IU, 3?4 TIMES A WEEK FOR PROPHY Q 24 HRS PRN BLEEDS
     Route: 042
     Dates: start: 20070417

REACTIONS (4)
  - Haemarthrosis [None]
  - Haemorrhage [Not Recovered/Not Resolved]
  - Haemarthrosis [None]
  - Haemarthrosis [None]

NARRATIVE: CASE EVENT DATE: 20170914
